FAERS Safety Report 24205323 (Version 1)
Quarter: 2024Q3

REPORT INFORMATION
  Report Type: Spontaneous
  Country: CA (occurrence: CA)
  Receive Date: 20240813
  Receipt Date: 20240813
  Transmission Date: 20241016
  Serious: Yes (Hospitalization)
  Sender: EPIC PHARM
  Company Number: CA-EPICPHARMA-CA-2024EPCLIT00930

PATIENT
  Age: 15 Year
  Sex: Male

DRUGS (3)
  1. GUANFACINE [Suspect]
     Active Substance: GUANFACINE
     Indication: Attention deficit hyperactivity disorder
     Route: 065
  2. EUCALYPTUS GLOBULUS LEAF [Suspect]
     Active Substance: EUCALYPTUS GLOBULUS LEAF
     Indication: Oropharyngeal pain
     Dosage: 14 LOZENGES
     Route: 065
  3. AMPHETAMINE\DEXTROAMPHETAMINE [Concomitant]
     Active Substance: AMPHETAMINE\DEXTROAMPHETAMINE
     Route: 065

REACTIONS (6)
  - Presyncope [Recovered/Resolved]
  - Toxicity to various agents [Recovered/Resolved]
  - Orthostatic hypotension [Recovered/Resolved]
  - Bradycardia [Recovered/Resolved]
  - Drug interaction [Unknown]
  - Product use in unapproved indication [Unknown]
